FAERS Safety Report 10623682 (Version 2)
Quarter: 2018Q1

REPORT INFORMATION
  Report Type: Spontaneous
  Country: US (occurrence: US)
  Receive Date: 20141203
  Receipt Date: 20180111
  Transmission Date: 20180508
  Serious: No
  Sender: FDA-Public Use
  Company Number: US-JNJFOC-20141117233

PATIENT
  Sex: Male

DRUGS (1)
  1. RISPERDAL [Suspect]
     Active Substance: RISPERIDONE
     Indication: ATTENTION DEFICIT/HYPERACTIVITY DISORDER
     Route: 048

REACTIONS (6)
  - Off label use [Unknown]
  - Abnormal weight gain [Unknown]
  - Hyperprolactinaemia [Unknown]
  - Product use in unapproved indication [Unknown]
  - Gynaecomastia [Unknown]
  - Galactorrhoea [Unknown]

NARRATIVE: CASE EVENT DATE: 2014
